FAERS Safety Report 19362000 (Version 5)
Quarter: 2022Q3

REPORT INFORMATION
  Report Type: Report from Study
  Country: JP (occurrence: JP)
  Receive Date: 20210603
  Receipt Date: 20220908
  Transmission Date: 20221027
  Serious: Yes (Hospitalization, Other)
  Sender: FDA-Public Use
  Company Number: JP-ONO-2021JP012818

PATIENT
  Age: 63 Year
  Sex: Male
  Weight: 84.9 kg

DRUGS (5)
  1. ETELCALCETIDE [Suspect]
     Active Substance: ETELCALCETIDE
     Indication: Hyperparathyroidism secondary
     Dosage: 5 MILLIGRAM, 3 TIMES/WK
     Route: 010
     Dates: start: 20191125
  2. BIXALOMER [Concomitant]
     Active Substance: BIXALOMER
     Dosage: 750 MG, EVERYDAY
     Route: 048
  3. CALCITRIOL [Concomitant]
     Active Substance: CALCITRIOL
     Dosage: 1.5 MICROGRAM, 2 TIMES/WK
     Route: 065
     Dates: start: 20211207
  4. ROCALTROL [Concomitant]
     Active Substance: CALCITRIOL
     Dosage: 1 MICROGRAM, Q84H
     Route: 065
     Dates: start: 20190723, end: 20190805
  5. ROCALTROL [Concomitant]
     Active Substance: CALCITRIOL
     Dosage: 1.5 MICROGRAM, Q84H
     Route: 065
     Dates: start: 20190809, end: 20211204

REACTIONS (2)
  - Peripheral arterial occlusive disease [Recovered/Resolved]
  - Shunt occlusion [Recovered/Resolved]

NARRATIVE: CASE EVENT DATE: 20200930
